FAERS Safety Report 5553594-7 (Version None)
Quarter: 2007Q4

REPORT INFORMATION
  Report Type: 
  Country: None (occurrence: None)
  Receive Date: 20071212
  Receipt Date: 20071212
  Transmission Date: 20080405
  Serious: Yes (Other)
  Sender: FDA-Public Use
  Company Number: None

PATIENT
  Age: 61 Year
  Sex: Male
  Weight: 125.1928 kg

DRUGS (2)
  1. VIAGRA [Suspect]
     Dosage: 50MG AS NEEDED 047
     Dates: start: 20050526, end: 20070322
  2. VIAGRA [Suspect]
     Dosage: 100MG AS NEEDED 047
     Dates: start: 20070323, end: 20071018

REACTIONS (1)
  - DEAFNESS [None]
